FAERS Safety Report 6234448-X (Version None)
Quarter: 2009Q2

REPORT INFORMATION
  Report Type: 
  Country: None (occurrence: None)
  Receive Date: 20090616
  Receipt Date: 20090616
  Transmission Date: 20091009
  Serious: Yes (Other)
  Sender: FDA-Public Use
  Company Number: None

PATIENT
  Age: 14 Year
  Sex: Male
  Weight: 74.8435 kg

DRUGS (1)
  1. ICY HOT SPECIFIC PRODUCT UNKNOWN [Suspect]

REACTIONS (3)
  - ACCIDENTAL EXPOSURE [None]
  - DRUG HYPERSENSITIVITY [None]
  - PRODUCT LABEL ISSUE [None]
